FAERS Safety Report 20956764 (Version 2)
Quarter: 2022Q3

REPORT INFORMATION
  Report Type: Spontaneous
  Country: US (occurrence: US)
  Receive Date: 20220614
  Receipt Date: 20220923
  Transmission Date: 20221027
  Serious: No
  Sender: FDA-Public Use
  Company Number: US-NOVARTISTESTPH-NVSC2022US135714

PATIENT
  Sex: Male

DRUGS (1)
  1. VOTRIENT [Suspect]
     Active Substance: PAZOPANIB HYDROCHLORIDE
     Indication: Meningioma malignant
     Dosage: 800 MG, QD
     Route: 048
     Dates: start: 202205

REACTIONS (3)
  - Fatigue [Unknown]
  - Taste disorder [Unknown]
  - Diarrhoea [Unknown]
